FAERS Safety Report 21711937 (Version 1)
Quarter: 2022Q4

REPORT INFORMATION
  Report Type: Spontaneous
  Country: US (occurrence: None)
  Receive Date: 20221208
  Receipt Date: 20221208
  Transmission Date: 20230113
  Serious: No
  Sender: FDA-Public Use
  Company Number: None

PATIENT
  Age: 58 Year
  Sex: Female
  Weight: 81.19 kg

DRUGS (3)
  1. ENBREL [Suspect]
     Active Substance: ETANERCEPT
     Indication: Polyarthritis
     Dosage: FREQUENCY : WEEKLY;?
     Route: 058
     Dates: start: 202012
  2. ENBREL [Suspect]
     Active Substance: ETANERCEPT
     Indication: Rheumatoid arthritis
  3. ENBREL [Suspect]
     Active Substance: ETANERCEPT
     Indication: Rheumatoid factor negative

REACTIONS (5)
  - Staphylococcal bacteraemia [None]
  - Loss of consciousness [None]
  - Eye infection bacterial [None]
  - Staphylococcal infection [None]
  - Coma [None]
